FAERS Safety Report 7080038-9 (Version None)
Quarter: 2010Q4

REPORT INFORMATION
  Report Type: 
  Country: None (occurrence: None)
  Receive Date: 20101102
  Receipt Date: 20100430
  Transmission Date: 20110411
  Serious: No
  Sender: FDA-Public Use
  Company Number: US-ABBOTT-10P-163-0642411-00

PATIENT
  Sex: Female
  Weight: 56.75 kg

DRUGS (1)
  1. BIAXIN [Suspect]
     Indication: STAPHYLOCOCCAL INFECTION
     Route: 048
     Dates: start: 20100209

REACTIONS (1)
  - RASH [None]
